FAERS Safety Report 26118078 (Version 1)
Quarter: 2025Q4

REPORT INFORMATION
  Report Type: Spontaneous
  Country: CN (occurrence: CN)
  Receive Date: 20251203
  Receipt Date: 20251203
  Transmission Date: 20260118
  Serious: Yes (Hospitalization)
  Sender: PFIZER
  Company Number: CN-PFIZER INC-PV202500139443

PATIENT
  Age: 12 Year
  Sex: Male
  Weight: 69 kg

DRUGS (2)
  1. METHOTREXATE SODIUM [Suspect]
     Active Substance: METHOTREXATE SODIUM
     Indication: Acute lymphocytic leukaemia
     Dosage: 9.05 G, 1X/DAY
     Route: 041
     Dates: start: 20251107, end: 20251107
  2. MERCAPTOPURINE [Concomitant]
     Active Substance: MERCAPTOPURINE
     Indication: Acute lymphocytic leukaemia
     Dosage: 45.25 MG, QN
     Dates: start: 20251107, end: 20251120

REACTIONS (6)
  - Renal function test abnormal [Recovering/Resolving]
  - Rash pruritic [Recovering/Resolving]
  - Mouth ulceration [Recovering/Resolving]
  - Metabolic disorder [Recovering/Resolving]
  - Rash erythematous [Recovering/Resolving]
  - Oropharyngeal erythema [Recovering/Resolving]

NARRATIVE: CASE EVENT DATE: 20251108
